FAERS Safety Report 5758000-5 (Version None)
Quarter: 2008Q2

REPORT INFORMATION
  Report Type: 
  Country: None (occurrence: None)
  Receive Date: 20080602
  Receipt Date: 20080602
  Transmission Date: 20081010
  Serious: Yes (Hospitalization, Other)
  Sender: FDA-Public Use
  Company Number: None

PATIENT
  Age: 78 Year
  Sex: Female
  Weight: 72.5755 kg

DRUGS (1)
  1. BONIVA [Suspect]
     Indication: BONE DENSITY DECREASED
     Dosage: ONCE A MONTH DOSE  ONCE PO (DURATION: SINGLE DOSE)
     Route: 048
     Dates: start: 20080509, end: 20080509

REACTIONS (2)
  - BONE PAIN [None]
  - MYALGIA [None]
